FAERS Safety Report 12485536 (Version 4)
Quarter: 2016Q3

REPORT INFORMATION
  Report Type: Report from Study
  Country: GB (occurrence: GB)
  Receive Date: 20160621
  Receipt Date: 20160915
  Transmission Date: 20161109
  Serious: No
  Sender: FDA-Public Use
  Company Number: GB-JNJFOC-20160613359

PATIENT
  Age: 47 Year
  Sex: Female

DRUGS (3)
  1. METOJECT [Concomitant]
     Active Substance: METHOTREXATE SODIUM
     Route: 065
  2. SIMPONI [Suspect]
     Active Substance: GOLIMUMAB
     Indication: PRODUCT USED FOR UNKNOWN INDICATION
     Route: 058
  3. SIMPONI [Suspect]
     Active Substance: GOLIMUMAB
     Indication: PRODUCT USED FOR UNKNOWN INDICATION
     Route: 058

REACTIONS (6)
  - Pelvic abscess [Recovering/Resolving]
  - Menorrhagia [Unknown]
  - Swelling [Not Recovered/Not Resolved]
  - C-reactive protein increased [Unknown]
  - Pain [Not Recovered/Not Resolved]
  - Hysterectomy [Unknown]

NARRATIVE: CASE EVENT DATE: 20160725
